FAERS Safety Report 7096460-0 (Version None)
Quarter: 2010Q4

REPORT INFORMATION
  Report Type: 
  Country: None (occurrence: None)
  Receive Date: 20101111
  Receipt Date: 20101109
  Transmission Date: 20110411
  Serious: Yes (Hospitalization)
  Sender: FDA-Public Use
  Company Number: GXKR2010DE12597

PATIENT
  Age: 78 Year
  Sex: Male
  Weight: 85 kg

DRUGS (8)
  1. ALLOPURINOL [Suspect]
     Route: 048
  2. BENDAMUSTINE [Suspect]
     Indication: CHRONIC LYMPHOCYTIC LEUKAEMIA
     Dosage: 170 MG, QD
     Route: 042
     Dates: start: 20100119, end: 20100318
  3. RITUXIMAB [Suspect]
     Indication: CHRONIC LYMPHOCYTIC LEUKAEMIA
     Dosage: 950 MG, QD
     Route: 042
     Dates: start: 20100119, end: 20100318
  4. VERGENTAN [Suspect]
     Indication: NAUSEA
  5. PREDNISOLON [Concomitant]
     Indication: NAUSEA
     Route: 048
  6. RANITIDINE [Concomitant]
     Indication: NAUSEA
     Route: 042
  7. TAVEGIL                                 /GFR/ [Concomitant]
     Indication: NAUSEA
     Route: 042
  8. KEVATRIL [Concomitant]
     Indication: NAUSEA
     Route: 042

REACTIONS (2)
  - INTERSTITIAL LUNG DISEASE [None]
  - SEPSIS [None]
